FAERS Safety Report 20966488 (Version 1)
Quarter: 2022Q2

REPORT INFORMATION
  Report Type: Spontaneous
  Country: JP (occurrence: JP)
  Receive Date: 20220616
  Receipt Date: 20220616
  Transmission Date: 20220720
  Serious: Yes (Other)
  Sender: FDA-Public Use
  Company Number: JP-MYLANLABS-2022M1044727

PATIENT
  Age: 10 Year
  Sex: Male

DRUGS (12)
  1. PHENOBARBITAL [Suspect]
     Active Substance: PHENOBARBITAL
     Indication: Partial seizures
  2. CLORAZEPATE DIPOTASSIUM [Suspect]
     Active Substance: CLORAZEPATE DIPOTASSIUM
     Indication: Partial seizures
     Route: 048
  3. LACOSAMIDE [Suspect]
     Active Substance: LACOSAMIDE
     Indication: Partial seizures
  4. CLONAZEPAM [Suspect]
     Active Substance: CLONAZEPAM
     Indication: Partial seizures
  5. PERAMPANEL [Suspect]
     Active Substance: PERAMPANEL
     Indication: Partial seizures
  6. ZONISAMIDE [Suspect]
     Active Substance: ZONISAMIDE
     Indication: Partial seizures
  7. CLOBAZAM [Suspect]
     Active Substance: CLOBAZAM
     Indication: Partial seizures
  8. LAMOTRIGINE [Suspect]
     Active Substance: LAMOTRIGINE
     Indication: Partial seizures
  9. VALPROATE SODIUM [Suspect]
     Active Substance: VALPROATE SODIUM
     Indication: Partial seizures
  10. LEVETIRACETAM [Suspect]
     Active Substance: LEVETIRACETAM
     Indication: Partial seizures
  11. CARBAMAZEPINE [Suspect]
     Active Substance: CARBAMAZEPINE
     Indication: Partial seizures
  12. RUFINAMIDE [Suspect]
     Active Substance: RUFINAMIDE
     Indication: Partial seizures
     Route: 048

REACTIONS (1)
  - Drug ineffective [Unknown]
